FAERS Safety Report 7151679-5 (Version None)
Quarter: 2010Q4

REPORT INFORMATION
  Report Type: 
  Country: None (occurrence: None)
  Receive Date: 20101210
  Receipt Date: 20101207
  Transmission Date: 20110411
  Serious: Yes (Other)
  Sender: FDA-Public Use
  Company Number: US-BAYER-2010-003121

PATIENT
  Age: 79 Year
  Sex: Female
  Weight: 81.6 kg

DRUGS (8)
  1. ACETYLSALICYLIC ACID SRT [Suspect]
     Dosage: UNK UNK, Q1MON
  2. FESOTERODINE [Suspect]
     Indication: BLADDER DISORDER
     Dosage: 8 MG, UNK
     Route: 048
     Dates: start: 20101013, end: 20101017
  3. ALPRAZOLAM [Suspect]
     Dosage: UNK UNK, PRN
  4. SIMVASTATIN [Suspect]
     Dosage: UNK UNK, Q1MON
  5. LEXAPRO [Suspect]
  6. SEROQUEL [Suspect]
     Dosage: UNK UNK, Q1MON
  7. FISH OIL [Suspect]
     Dosage: UNK UNK, Q1MON
  8. VITAMIN D [Suspect]
     Dosage: UNK UNK, Q1MON

REACTIONS (4)
  - CONSTIPATION [None]
  - DRY MOUTH [None]
  - URINARY TRACT DISORDER [None]
  - VISION BLURRED [None]
